FAERS Safety Report 6152321-2 (Version None)
Quarter: 2009Q2

REPORT INFORMATION
  Report Type: 
  Country: None (occurrence: None)
  Receive Date: 20090413
  Receipt Date: 20080501
  Transmission Date: 20091009
  Serious: Yes (Other)
  Sender: FDA-Public Use
  Company Number: US-ASTRAZENECA-2007UW08832

PATIENT
  Age: 42 Year
  Sex: Male

DRUGS (9)
  1. SEROQUEL [Suspect]
     Indication: MENTAL DISORDER
  2. METFORMIN [Concomitant]
  3. OMEPRAZOLE [Concomitant]
  4. NAPROXEN [Concomitant]
  5. CARVEDILOL [Concomitant]
  6. GLYBURIDE [Concomitant]
  7. LANTUS [Concomitant]
  8. PEPCID [Concomitant]
  9. FLEXERIL [Concomitant]

REACTIONS (9)
  - BACK PAIN [None]
  - CONSTIPATION [None]
  - DIABETES MELLITUS [None]
  - EAR PAIN [None]
  - GASTROOESOPHAGEAL REFLUX DISEASE [None]
  - HYPOGLYCAEMIA [None]
  - PANCREATITIS [None]
  - RASH [None]
  - VISION BLURRED [None]
